FAERS Safety Report 7472307-5 (Version None)
Quarter: 2011Q1

REPORT INFORMATION
  Report Type: 
  Country: None (occurrence: None)
  Receive Date: 20110302
  Receipt Date: 20101222
  Transmission Date: 20110831
  Serious: Yes (Hospitalization)
  Sender: FDA-Public Use
  Company Number: 163-21880-10100523

PATIENT
  Age: 57 Year
  Sex: Male

DRUGS (6)
  1. ATENOLOL [Concomitant]
  2. REVLIMID [Suspect]
     Indication: MULTIPLE MYELOMA
     Dosage: 25 MG, X 21 DAYS, PO, 25 MG, 1 IN 1 D, PO
     Route: 048
     Dates: start: 20100726, end: 20100918
  3. REVLIMID [Suspect]
     Indication: MULTIPLE MYELOMA
     Dosage: 25 MG, X 21 DAYS, PO, 25 MG, 1 IN 1 D, PO
     Route: 048
     Dates: start: 20100924, end: 20101121
  4. METFORMIN (METFORMIN) [Concomitant]
  5. LOVASTATIN [Concomitant]
  6. GLYBURIDE [Concomitant]

REACTIONS (3)
  - BLOOD GLUCOSE DECREASED [None]
  - DRUG DOSE OMISSION [None]
  - PAIN [None]
